FAERS Safety Report 8451391-6 (Version None)
Quarter: 2012Q2

REPORT INFORMATION
  Report Type: 
  Country: None (occurrence: None)
  Receive Date: 20120620
  Receipt Date: 20120227
  Transmission Date: 20120825
  Serious: No
  Sender: FDA-Public Use
  Company Number: US-VERTEX PHARMACEUTICALS INC.-AE-2012-002855

PATIENT
  Age: 54 Year
  Sex: Female
  Weight: 64.468 kg

DRUGS (5)
  1. PEGASYS [Concomitant]
     Indication: HEPATITIS C
     Route: 058
     Dates: start: 20120124
  2. RIBAVIRIN [Concomitant]
     Indication: HEPATITIS C
     Dates: start: 20120124
  3. PREMARIN [Concomitant]
  4. PROVERA [Concomitant]
  5. INCIVEK [Suspect]
     Indication: HEPATITIS C
     Route: 048
     Dates: start: 20120124

REACTIONS (4)
  - PROCTITIS [None]
  - PROCTALGIA [None]
  - DIARRHOEA [None]
  - ANAL EROSION [None]
